FAERS Safety Report 4544778-5 (Version None)
Quarter: 2004Q4

REPORT INFORMATION
  Report Type: 
  Country: None (occurrence: None)
  Receive Date: 20041230
  Receipt Date: 20041217
  Transmission Date: 20050328
  Serious: Yes (Other)
  Sender: FDA-Public Use
  Company Number: 2004114702

PATIENT
  Age: 38 Year
  Sex: Male

DRUGS (1)
  1. ZOLOFT [Suspect]
     Indication: DEPRESSION
     Dosage: 50 MG, ORAL
     Route: 048
     Dates: start: 20040901, end: 20041101

REACTIONS (7)
  - BLOOD LACTATE DEHYDROGENASE INCREASED [None]
  - CHILLS [None]
  - CHRONIC MYELOID LEUKAEMIA [None]
  - FEBRILE INFECTION [None]
  - HEADACHE [None]
  - THROMBOCYTHAEMIA [None]
  - VITAMIN B12 INCREASED [None]
